FAERS Safety Report 8469382-8 (Version None)
Quarter: 2012Q2

REPORT INFORMATION
  Report Type: 
  Country: None (occurrence: None)
  Receive Date: 20120626
  Receipt Date: 20120620
  Transmission Date: 20120825
  Serious: Yes (Hospitalization)
  Sender: FDA-Public Use
  Company Number: US-PFIZER INC-2012149185

PATIENT
  Sex: Female
  Weight: 73.469 kg

DRUGS (4)
  1. LYRICA [Suspect]
     Indication: PAIN
     Dosage: UNK
  2. XALATAN [Suspect]
     Indication: GLAUCOMA
     Dosage: UNK
  3. LYRICA [Suspect]
  4. SEROQUEL [Concomitant]
     Indication: SLEEP DISORDER
     Dosage: UNK

REACTIONS (2)
  - MENTAL DISORDER [None]
  - RASH [None]
